FAERS Safety Report 12412791 (Version 2)
Quarter: 2016Q2

REPORT INFORMATION
  Report Type: Spontaneous
  Country: US (occurrence: US)
  Receive Date: 20160527
  Receipt Date: 20160615
  Transmission Date: 20160815
  Serious: No
  Sender: FDA-Public Use
  Company Number: US-PFIZER INC-2016269942

PATIENT
  Age: 20 Year
  Sex: Female

DRUGS (1)
  1. LYRICA [Suspect]
     Active Substance: PREGABALIN
     Indication: FIBROMYALGIA
     Dosage: 150 MG, 3X/DAY

REACTIONS (7)
  - Drug withdrawal syndrome [Unknown]
  - Product use issue [Unknown]
  - Hyperhidrosis [Unknown]
  - Insomnia [Unknown]
  - Intentional product use issue [Unknown]
  - Drug ineffective [Unknown]
  - Anxiety [Unknown]
